FAERS Safety Report 8511718 (Version 2)
Quarter: 2014Q1

REPORT INFORMATION
  Report Type: Spontaneous
  Country: US (occurrence: US)
  Receive Date: 20120413
  Receipt Date: 20140203
  Transmission Date: 20141002
  Serious: No
  Sender: FDA-Public Use
  Company Number: US-ASTRAZENECA-2011SE43290

PATIENT
  Age: 60 Year
  Sex: Female
  Weight: 89.8 kg

DRUGS (9)
  1. NEXIUM [Suspect]
     Indication: GASTROOESOPHAGEAL REFLUX DISEASE
     Route: 048
  2. NEXIUM [Suspect]
     Indication: HIATUS HERNIA
     Route: 048
  3. NEXIUM [Suspect]
     Indication: GASTROOESOPHAGEAL REFLUX DISEASE
     Route: 048
  4. NEXIUM [Suspect]
     Indication: HIATUS HERNIA
     Route: 048
  5. NEXIUM [Suspect]
     Indication: GASTROOESOPHAGEAL REFLUX DISEASE
     Route: 048
     Dates: start: 2012, end: 201312
  6. NEXIUM [Suspect]
     Indication: HIATUS HERNIA
     Route: 048
     Dates: start: 2012, end: 201312
  7. LISINOPRIL HCTZ [Suspect]
     Indication: BLOOD PRESSURE
     Dosage: ONE HALF 10 12.5 DAILY
     Route: 048
     Dates: start: 201310
  8. LEVOTHYROXINE [Concomitant]
     Indication: THYROID DISORDER
  9. BABY ASPIRIN [Concomitant]
     Indication: PROPHYLAXIS

REACTIONS (6)
  - Choking [Unknown]
  - Gastrooesophageal reflux disease [Unknown]
  - Thyroid disorder [Unknown]
  - Off label use [Unknown]
  - Incorrect dose administered [Unknown]
  - Drug dose omission [Unknown]
